FAERS Safety Report 14719161 (Version 1)
Quarter: 2018Q2

REPORT INFORMATION
  Report Type: Spontaneous
  Country: US (occurrence: US)
  Receive Date: 20180405
  Receipt Date: 20180405
  Transmission Date: 20180711
  Serious: No
  Sender: FDA-Public Use
  Company Number: US-REGULIS-2045130

PATIENT
  Age: 32 Year
  Sex: Male

DRUGS (1)
  1. METHYLENE BLUE. [Suspect]
     Active Substance: METHYLENE BLUE
     Route: 065

REACTIONS (1)
  - Tissue discolouration [Unknown]
